FAERS Safety Report 7961522-X (Version None)
Quarter: 2011Q4

REPORT INFORMATION
  Report Type: 
  Country: None (occurrence: None)
  Receive Date: 20111207
  Receipt Date: 20111201
  Transmission Date: 20120403
  Serious: Yes (Death)
  Sender: FDA-Public Use
  Company Number: US-CELGENEUS-163-21880-11110951

PATIENT
  Sex: Female

DRUGS (11)
  1. VITAMIN D [Concomitant]
     Route: 065
  2. REVLIMID [Suspect]
     Route: 048
     Dates: start: 20070101, end: 20080901
  3. REVLIMID [Suspect]
     Dosage: 10 MILLIGRAM
     Route: 048
     Dates: start: 20110801
  4. MULTI-VITAMIN [Concomitant]
     Route: 065
  5. CALCIUM [Concomitant]
     Route: 065
  6. ACYCLOVIR [Concomitant]
     Route: 065
  7. REVLIMID [Suspect]
     Indication: MULTIPLE MYELOMA
     Dosage: 25 MILLIGRAM
     Route: 048
     Dates: start: 20100401
  8. REVLIMID [Suspect]
     Dosage: 10 MILLIGRAM
     Route: 048
     Dates: start: 20100701
  9. FISH OIL [Concomitant]
     Route: 065
  10. ALLEGRA-D 12 HOUR [Concomitant]
     Route: 065
  11. PREDNISONE TAB [Concomitant]
     Dosage: 20 MILLIGRAM
     Route: 065
     Dates: start: 20110218

REACTIONS (1)
  - MULTIPLE MYELOMA [None]
